FAERS Safety Report 16213825 (Version 1)
Quarter: 2019Q2

REPORT INFORMATION
  Report Type: Spontaneous
  Country: PT (occurrence: PT)
  Receive Date: 20190418
  Receipt Date: 20190418
  Transmission Date: 20190711
  Serious: Yes (Hospitalization, Other)
  Sender: FDA-Public Use
  Company Number: PT-ALVOGEN-2019-ALVOGEN-099397

PATIENT
  Age: 40 Year
  Sex: Male

DRUGS (4)
  1. BUPROPION. [Suspect]
     Active Substance: BUPROPION
     Indication: DRUG DEPENDENCE
     Dosage: INGESTED 16 BUPROPION 300 MG TABLETS
  2. METHYLTHIONINIUM CHLORIDE [Suspect]
     Active Substance: METHYLENE BLUE
     Indication: METHAEMOGLOBINAEMIA
     Dosage: SECOND INFUSION OF 100 MG WAS STARTED (AIMING AT A TOTAL DOSE?OF 2 MG/KG), DISCONTINUED AFTER 50 MG
  3. METHYLTHIONINIUM CHLORIDE [Suspect]
     Active Substance: METHYLENE BLUE
     Indication: METHAEMOGLOBINAEMIA
     Dosage: (1 MG/KG) OF METHYLENE BLUE IN A 1% SOLUTION
  4. VALPROATE ACID [Concomitant]
     Active Substance: VALPROATE SODIUM
     Indication: MOOD SWINGS

REACTIONS (3)
  - Generalised tonic-clonic seizure [Recovering/Resolving]
  - Toxicity to various agents [Recovering/Resolving]
  - Methaemoglobinaemia [Recovering/Resolving]
